FAERS Safety Report 24332603 (Version 1)
Quarter: 2024Q3

REPORT INFORMATION
  Report Type: Spontaneous
  Country: ES (occurrence: ES)
  Receive Date: 20240918
  Receipt Date: 20240918
  Transmission Date: 20241017
  Serious: Yes (Other)
  Sender: MYLAN
  Company Number: ES-ROCHE-10000008404

PATIENT

DRUGS (8)
  1. GEFITINIB [Suspect]
     Active Substance: GEFITINIB
     Indication: Neoplasm malignant
     Dosage: UNK
     Route: 065
  2. SORAFENIB [Suspect]
     Active Substance: SORAFENIB
     Indication: Neoplasm malignant
     Dosage: UNK
     Route: 065
  3. ERLOTINIB [Suspect]
     Active Substance: ERLOTINIB
     Indication: Neoplasm malignant
     Dosage: UNK
     Route: 065
  4. SUNITINIB [Suspect]
     Active Substance: SUNITINIB
     Indication: Neoplasm malignant
     Dosage: UNK
     Route: 065
  5. IMATINIB [Suspect]
     Active Substance: IMATINIB
     Indication: Neoplasm malignant
     Dosage: UNK
     Route: 065
  6. PAZOPANIB [Suspect]
     Active Substance: PAZOPANIB
     Indication: Neoplasm malignant
     Dosage: UNK
     Route: 065
  7. IBRUTINIB [Suspect]
     Active Substance: IBRUTINIB
     Indication: Neoplasm malignant
     Dosage: UNK
     Route: 065
  8. AXITINIB [Suspect]
     Active Substance: AXITINIB
     Indication: Neoplasm malignant
     Dosage: UNK
     Route: 065

REACTIONS (8)
  - Mucosal inflammation [Unknown]
  - Hepatobiliary disease [Unknown]
  - Blood disorder [Unknown]
  - Cardiovascular disorder [Unknown]
  - Fatigue [Unknown]
  - Skin disorder [Unknown]
  - Nervous system disorder [Unknown]
  - Gastrointestinal disorder [Unknown]
